FAERS Safety Report 9754356 (Version 4)
Quarter: 2014Q3

REPORT INFORMATION
  Report Type: Spontaneous
  Country: AR (occurrence: AR)
  Receive Date: 20131213
  Receipt Date: 20140815
  Transmission Date: 20150326
  Serious: Yes (Other)
  Sender: FDA-Public Use
  Company Number: PHHY2013AR145580

PATIENT
  Sex: Male

DRUGS (2)
  1. VISCOTEARS [Suspect]
     Active Substance: CARBOMER
     Indication: DRY EYE
     Dosage: UNK UKN, UNK
     Dates: start: 2000
  2. HYPOTEARS [Suspect]
     Active Substance: POLYETHYLENE GLYCOL 400\POLYVINYL ALCOHOL
     Indication: DRY EYE
     Dosage: 12 DROPS DAILY
     Dates: start: 2000, end: 201310

REACTIONS (13)
  - Cataract [Not Recovered/Not Resolved]
  - Blindness [Not Recovered/Not Resolved]
  - Intraocular pressure test abnormal [Not Recovered/Not Resolved]
  - Infection [Unknown]
  - Keratitis [Unknown]
  - Photophobia [Unknown]
  - Glaucoma [Recovered/Resolved]
  - Optic nerve injury [Not Recovered/Not Resolved]
  - Hypersensitivity [Unknown]
  - Eye swelling [Unknown]
  - Dry eye [Unknown]
  - Ocular discomfort [Unknown]
  - Conjunctivitis [Unknown]

NARRATIVE: CASE EVENT DATE: 2011
